FAERS Safety Report 6786497-0 (Version None)
Quarter: 2010Q2

REPORT INFORMATION
  Report Type: 
  Country: None (occurrence: None)
  Receive Date: 20100623
  Receipt Date: 20100615
  Transmission Date: 20101027
  Serious: Yes (Hospitalization)
  Sender: FDA-Public Use
  Company Number: B0660649A

PATIENT
  Age: 66 Year
  Sex: Male
  Weight: 109.4 kg

DRUGS (23)
  1. AMPICILLIN SODIUM/SULBACTAM SODIUM [Suspect]
     Indication: WOUND INFECTION
     Dosage: 1875MCG PER DAY
     Route: 048
     Dates: start: 20090902, end: 20090908
  2. AMPICILLIN SODIUM/SULBACTAM SODIUM [Suspect]
     Dosage: 3.6G PER DAY
     Route: 042
     Dates: start: 20090908, end: 20090915
  3. PARACETAMOL [Concomitant]
     Dosage: 4G PER DAY
     Route: 048
     Dates: start: 20090728, end: 20091007
  4. ATORVASTATIN [Concomitant]
     Route: 048
     Dates: start: 20090727, end: 20090908
  5. ASPIRIN [Concomitant]
     Indication: CORONARY ARTERY DISEASE
     Dosage: 75MG PER DAY
     Route: 048
     Dates: start: 20090727, end: 20090823
  6. MINIHEP [Concomitant]
     Indication: THROMBOSIS PROPHYLAXIS
     Dosage: 15000IU PER DAY
     Route: 058
     Dates: start: 20090729, end: 20090803
  7. INDAPAMIDE [Concomitant]
     Indication: HYPERTENSION
     Dosage: 2.5MG PER DAY
     Route: 048
     Dates: start: 20090727, end: 20090823
  8. CEFUROXIME [Concomitant]
     Indication: ANTIBIOTIC PROPHYLAXIS
     Dosage: 2250MG PER DAY
     Route: 042
     Dates: start: 20090728, end: 20090731
  9. WARFARIN [Concomitant]
     Route: 048
     Dates: start: 20090729
  10. AMIODARONE [Concomitant]
     Indication: ATRIAL FIBRILLATION
     Route: 048
     Dates: start: 20090730, end: 20090823
  11. DIHYDROCODEINE BITARTRATE INJ [Concomitant]
     Indication: PAIN
     Dosage: 120MG PER DAY
     Route: 048
     Dates: start: 20090731, end: 20090924
  12. POTASSIUM CHLORIDE [Concomitant]
     Dosage: 80MMOL PER DAY
     Route: 048
     Dates: start: 20090802, end: 20090805
  13. SUCRALFATE [Concomitant]
     Indication: NAUSEA
     Dosage: 3G PER DAY
     Route: 048
     Dates: start: 20090824
  14. PANTOPRAZOLE [Concomitant]
     Indication: GASTRIC DISORDER
     Route: 042
     Dates: start: 20090824, end: 20090826
  15. TAZOCIN [Concomitant]
     Indication: WOUND INFECTION
     Route: 042
     Dates: start: 20090824, end: 20090902
  16. HEPARIN [Concomitant]
     Route: 042
     Dates: start: 20090825, end: 20090902
  17. LANSOPRAZOLE [Concomitant]
     Indication: GASTRIC DISORDER
     Dosage: 30MG PER DAY
     Route: 048
     Dates: start: 20090827, end: 20091007
  18. SANDO-K [Concomitant]
     Dosage: 6IUAX PER DAY
     Route: 048
     Dates: start: 20090829, end: 20090903
  19. BISOPROLOL [Concomitant]
     Indication: HYPERTENSION
     Dosage: 1.25MG PER DAY
     Route: 048
     Dates: start: 20090902, end: 20091007
  20. AMPICILLIN SODIUM/SULBACTAM SODIUM [Concomitant]
     Dosage: 1875MCG PER DAY
     Route: 048
     Dates: start: 20090915, end: 20090925
  21. FRUMIL [Concomitant]
     Indication: HYPERTENSION
     Dosage: 1IUAX PER DAY
     Route: 048
     Dates: start: 20090905, end: 20091007
  22. MEROPENEM [Concomitant]
     Indication: WOUND INFECTION
     Dosage: 3G PER DAY
     Route: 042
     Dates: start: 20090906, end: 20090907
  23. TEMAZEPAM [Concomitant]
     Indication: INSOMNIA
     Route: 048
     Dates: start: 20090902, end: 20090925

REACTIONS (3)
  - INTERNATIONAL NORMALISED RATIO INCREASED [None]
  - JAUNDICE [None]
  - LIVER FUNCTION TEST ABNORMAL [None]
